FAERS Safety Report 9126910 (Version 1)
Quarter: 2013Q1

REPORT INFORMATION
  Report Type: Report from Study
  Country: ZA (occurrence: ZA)
  Receive Date: 20130122
  Receipt Date: 20130122
  Transmission Date: 20140127
  Serious: Yes (Death)
  Sender: FDA-Public Use
  Company Number: ZA-ROCHE-1181834

PATIENT
  Age: 80 Year
  Sex: Male

DRUGS (2)
  1. MIRCERA [Suspect]
     Indication: PRODUCT USED FOR UNKNOWN INDICATION
     Route: 058
     Dates: start: 20120213
  2. MIRCERA [Suspect]
     Route: 058
     Dates: end: 201212

REACTIONS (2)
  - Renal failure [Fatal]
  - Cardiopulmonary failure [Fatal]
